FAERS Safety Report 4710373-8 (Version None)
Quarter: 2005Q3

REPORT INFORMATION
  Report Type: 
  Country: None (occurrence: None)
  Receive Date: 20050707
  Receipt Date: 20050622
  Transmission Date: 20060218
  Serious: Yes (Death)
  Sender: FDA-Public Use
  Company Number: USA0506101037

PATIENT
  Sex: Female

DRUGS (1)
  1. PROZAC [Suspect]
     Dosage: 20 MG DAY

REACTIONS (1)
  - DEATH [None]
